FAERS Safety Report 9694522 (Version 3)
Quarter: 2014Q1

REPORT INFORMATION
  Report Type: Report from Study
  Country: US (occurrence: US)
  Receive Date: 20131118
  Receipt Date: 20140103
  Transmission Date: 20141002
  Serious: Yes (Death, Hospitalization, Other)
  Sender: FDA-Public Use
  Company Number: US-ROCHE-1178689

PATIENT
  Age: 63 Year
  Sex: Male
  Weight: 89.89 kg

DRUGS (2)
  1. BEVACIZUMAB [Suspect]
     Indication: ANAPLASTIC ASTROCYTOMA
     Route: 042
     Dates: start: 20120913, end: 20130103
  2. LBH589B [Suspect]
     Indication: ANAPLASTIC ASTROCYTOMA
     Route: 048
     Dates: start: 20120913, end: 20130103

REACTIONS (3)
  - Myocardial ischaemia [Fatal]
  - Glioblastoma [Fatal]
  - Hydrocephalus [Recovered/Resolved]
